FAERS Safety Report 14581744 (Version 1)
Quarter: 2018Q1

REPORT INFORMATION
  Report Type: Spontaneous
  Country: US (occurrence: US)
  Receive Date: 20180227
  Receipt Date: 20180227
  Transmission Date: 20180509
  Serious: Yes (Hospitalization)
  Sender: FDA-Public Use
  Company Number: None

PATIENT
  Age: 85 Year
  Sex: Male

DRUGS (1)
  1. TRACLEER [Suspect]
     Active Substance: BOSENTAN
     Indication: PULMONARY ARTERIAL HYPERTENSION
     Route: 048
     Dates: start: 201411

REACTIONS (5)
  - Infarction [None]
  - Pulmonary embolism [None]
  - Arrhythmia [None]
  - Ischaemia [None]
  - Palpitations [None]

NARRATIVE: CASE EVENT DATE: 20180216
